FAERS Safety Report 8250670-5 (Version None)
Quarter: 2012Q2

REPORT INFORMATION
  Report Type: 
  Country: None (occurrence: None)
  Receive Date: 20120402
  Receipt Date: 20120329
  Transmission Date: 20120825
  Serious: Yes (Hospitalization)
  Sender: FDA-Public Use
  Company Number: US-PFIZER INC-2012080593

PATIENT
  Sex: Male
  Weight: 90.7 kg

DRUGS (1)
  1. GENOTROPIN [Suspect]
     Indication: PRADER-WILLI SYNDROME
     Dosage: 0.2 MG, DAILY
     Route: 058
     Dates: start: 20060911

REACTIONS (2)
  - ABNORMAL BEHAVIOUR [None]
  - ANGER [None]
